FAERS Safety Report 25004918 (Version 1)
Quarter: 2025Q1

REPORT INFORMATION
  Report Type: Spontaneous
  Country: US (occurrence: US)
  Receive Date: 20250224
  Receipt Date: 20250224
  Transmission Date: 20250409
  Serious: Yes (Hospitalization)
  Sender: LANTHEUS MEDICAL IMAGING
  Company Number: US-LANTHEUS-LMI-2024-00388

PATIENT
  Age: 70 Year
  Sex: Female
  Weight: 65 kg

DRUGS (2)
  1. DEFINITY [Suspect]
     Active Substance: PERFLUTREN
     Indication: Echocardiogram
     Route: 042
     Dates: start: 20240401, end: 20240401
  2. OXYGEN [Concomitant]
     Active Substance: OXYGEN
     Indication: Product used for unknown indication

REACTIONS (1)
  - Anaphylactic reaction [Not Recovered/Not Resolved]

NARRATIVE: CASE EVENT DATE: 20240401
